FAERS Safety Report 8681106 (Version 2)
Quarter: 2013Q4

REPORT INFORMATION
  Report Type: Spontaneous
  Country: US (occurrence: US)
  Receive Date: 20120724
  Receipt Date: 20131101
  Transmission Date: 20140711
  Serious: No
  Sender: FDA-Public Use
  Company Number: US-009507513-1207USA008379

PATIENT
  Age: 54 Year
  Sex: Male

DRUGS (2)
  1. TEMODAR [Suspect]
  2. ZOFRAN [Concomitant]
     Dosage: UNK

REACTIONS (1)
  - Depressed mood [Unknown]
